FAERS Safety Report 16066005 (Version 2)
Quarter: 2019Q1

REPORT INFORMATION
  Report Type: Report from Study
  Country: DE (occurrence: DE)
  Receive Date: 20190313
  Receipt Date: 20190327
  Transmission Date: 20190418
  Serious: Yes (Death, Life-Threatening, Hospitalization, Other)
  Sender: FDA-Public Use
  Company Number: DE-ACTELION-A-CH2018-170012

PATIENT
  Age: 20 Year
  Sex: Female
  Weight: 50 kg

DRUGS (7)
  1. KALINOR [Concomitant]
     Indication: PROPHYLAXIS
     Dosage: UNK
     Route: 048
     Dates: start: 20180306
  2. SILDENAFIL. [Concomitant]
     Active Substance: SILDENAFIL
     Indication: PULMONARY ARTERIAL HYPERTENSION
     Dosage: 60 MG, OD
     Dates: start: 20171218, end: 20180122
  3. SILDENAFIL. [Concomitant]
     Active Substance: SILDENAFIL
     Dosage: 120 MG, OD
     Dates: start: 20180122
  4. UPTRAVI [Suspect]
     Active Substance: SELEXIPAG
     Dosage: 1200 MCG, OD
     Route: 048
     Dates: start: 20180213, end: 201804
  5. UPTRAVI [Suspect]
     Active Substance: SELEXIPAG
     Indication: PULMONARY ARTERIAL HYPERTENSION
     Dosage: 800 MCG, OD
     Route: 048
     Dates: start: 20180202, end: 20180213
  6. OPSUMIT [Suspect]
     Active Substance: MACITENTAN
     Indication: PULMONARY ARTERIAL HYPERTENSION
     Dosage: 10 MG, OD
     Route: 048
     Dates: start: 20180102, end: 201804
  7. XARELTO [Concomitant]
     Active Substance: RIVAROXABAN
     Indication: PULMONARY ARTERIAL HYPERTENSION
     Dosage: UNK
     Route: 048
     Dates: start: 20171222

REACTIONS (22)
  - Pupillary reflex impaired [Fatal]
  - Cerebral haematoma [Fatal]
  - Haemorrhage intracranial [Fatal]
  - Thoracotomy [Unknown]
  - Thoracic haemorrhage [Recovered/Resolved]
  - Pulse absent [Not Recovered/Not Resolved]
  - Intracerebral haematoma evacuation [Unknown]
  - Haemorrhagic stroke [Fatal]
  - Pupils unequal [Fatal]
  - Dialysis [Unknown]
  - Nasopharyngitis [Recovered/Resolved]
  - Acute kidney injury [Unknown]
  - Fasciotomy [Unknown]
  - Skin discolouration [Not Recovered/Not Resolved]
  - Compartment syndrome [Not Recovered/Not Resolved]
  - Anuria [Unknown]
  - Craniotomy [Unknown]
  - Haemorrhage [Unknown]
  - Pericardial haemorrhage [Not Recovered/Not Resolved]
  - Pericardial effusion [Not Recovered/Not Resolved]
  - Pericardial drainage [Unknown]
  - Weight increased [Unknown]

NARRATIVE: CASE EVENT DATE: 20180212
